FAERS Safety Report 6973039-X (Version None)
Quarter: 2010Q3

REPORT INFORMATION
  Report Type: 
  Country: None (occurrence: None)
  Receive Date: 20100909
  Receipt Date: 20100831
  Transmission Date: 20110219
  Serious: Yes (Other)
  Sender: FDA-Public Use
  Company Number: DE-SANOFI-AVENTIS-2010SA051908

PATIENT
  Age: 53 Year
  Sex: Male

DRUGS (16)
  1. OXALIPLATIN [Suspect]
     Route: 042
  2. OXALIPLATIN [Suspect]
     Route: 042
     Dates: start: 20100713, end: 20100713
  3. FLUOROURACIL [Suspect]
     Route: 042
  4. FLUOROURACIL [Suspect]
     Route: 042
     Dates: start: 20100713, end: 20100714
  5. FOLINIC ACID [Suspect]
     Route: 042
  6. FOLINIC ACID [Suspect]
     Route: 042
     Dates: start: 20100713, end: 20100713
  7. TRASTUZUMAB [Suspect]
     Route: 042
  8. TRASTUZUMAB [Suspect]
     Route: 042
     Dates: start: 20100713, end: 20100713
  9. PANTOPRAZOLE SODIUM [Concomitant]
  10. AMARYL [Concomitant]
  11. METOPROLOL SUCCINATE [Concomitant]
  12. RAMIPRIL [Concomitant]
  13. METOCLOPRAMIDE HYDROCHLORIDE [Concomitant]
  14. CIPROFLOXACIN [Concomitant]
  15. LORAZEPAM [Concomitant]
  16. IBUPROFEN [Concomitant]

REACTIONS (1)
  - CARDIOTOXICITY [None]
